FAERS Safety Report 5024162-0 (Version None)
Quarter: 2006Q2

REPORT INFORMATION
  Report Type: 
  Country: None (occurrence: None)
  Receive Date: 20060607
  Receipt Date: 20060519
  Transmission Date: 20061013
  Serious: Yes (Hospitalization)
  Sender: FDA-Public Use
  Company Number: US200605004413

PATIENT
  Age: 43 Year
  Sex: Female

DRUGS (4)
  1. CYMBALTA [Suspect]
     Dosage: 30 MG
  2. LEXAPRO [Concomitant]
  3. SEROQUEL [Concomitant]
  4. CLOZAPINE [Concomitant]

REACTIONS (3)
  - AGITATION [None]
  - NERVOUSNESS [None]
  - PANIC DISORDER [None]
